FAERS Safety Report 12625525 (Version 6)
Quarter: 2016Q4

REPORT INFORMATION
  Report Type: Spontaneous
  Country: GB (occurrence: GB)
  Receive Date: 20160805
  Receipt Date: 20161104
  Transmission Date: 20170207
  Serious: Yes (Other)
  Sender: FDA-Public Use
  Company Number: GB-TEVA-681011ACC

PATIENT
  Age: 69 Year
  Sex: Female

DRUGS (16)
  1. EPIRUBICIN [Suspect]
     Active Substance: EPIRUBICIN
     Indication: BREAST CANCER
     Dosage: 126 MILLIGRAM DAILY; 126 MG, CYCLE 1/6 BY A PAXMAN SCALP COOLER
     Route: 042
     Dates: start: 20160608
  2. EMEND [Suspect]
     Active Substance: APREPITANT
     Dosage: REDUCED DOSE
     Route: 048
  3. EMEND [Suspect]
     Active Substance: APREPITANT
     Indication: PRODUCT USED FOR UNKNOWN INDICATION
     Dosage: 125 MILLIGRAM DAILY; 125 MG, QD
     Route: 048
  4. FLUOROURACIL. [Suspect]
     Active Substance: FLUOROURACIL
     Indication: PRODUCT USED FOR UNKNOWN INDICATION
     Dosage: 1008 MILLIGRAM DAILY; 1008 MG, CYCLE 1/6
     Route: 042
     Dates: start: 20160608
  5. EPIRUBICIN [Suspect]
     Active Substance: EPIRUBICIN
     Dosage: CYCLE 1/6, BY A PAXMAN SCALP COOLER, REDUCED DOSE
     Route: 042
  6. METOCLOPRAMIDE. [Suspect]
     Active Substance: METOCLOPRAMIDE
     Dosage: REDUCED DOSE
     Route: 065
  7. FLUOROURACIL. [Suspect]
     Active Substance: FLUOROURACIL
     Route: 042
  8. MILPHARM ONDANSETRON [Suspect]
     Active Substance: ONDANSETRON
     Dosage: REDUCED DOSE
     Route: 042
  9. DEXAMETHASONE. [Suspect]
     Active Substance: DEXAMETHASONE
     Dosage: REDUCED DOSE
     Route: 042
  10. CYCLOPHOSPHAMIDE. [Suspect]
     Active Substance: CYCLOPHOSPHAMIDE
     Indication: BREAST CANCER
     Dosage: .9 MILLIGRAM DAILY; 0.9 MG, CYCLE 1/6 BY A PAXMAN SCALP COOLER
     Route: 042
     Dates: start: 20160608
  11. MILPHARM ONDANSETRON [Suspect]
     Active Substance: ONDANSETRON
     Indication: PRODUCT USED FOR UNKNOWN INDICATION
     Dosage: 8 MILLIGRAM DAILY; 8 MG, UNK
     Route: 042
  12. DEXAMETHASONE. [Suspect]
     Active Substance: DEXAMETHASONE
     Indication: PRODUCT USED FOR UNKNOWN INDICATION
     Dosage: 8 MILLIGRAM DAILY; 8 MG, QD
     Route: 042
  13. CYCLOPHOSPHAMIDE. [Suspect]
     Active Substance: CYCLOPHOSPHAMIDE
     Dosage: CYCLE 1/6, BY A PAXMAN SCALP COOLER, REDUCED DOSE
     Route: 042
  14. NEULASTA [Suspect]
     Active Substance: PEGFILGRASTIM
     Dosage: CYCLE 1/6, BY A PAXMAN SCALP COOLER, REDUCED DOSE
     Route: 058
  15. METOCLOPRAMIDE. [Suspect]
     Active Substance: METOCLOPRAMIDE
     Indication: PRODUCT USED FOR UNKNOWN INDICATION
     Route: 065
  16. NEULASTA [Suspect]
     Active Substance: PEGFILGRASTIM
     Indication: BREAST CANCER
     Dosage: 6 MG, CYCLE 1/6 BY A PAXMAN SCALP COOLER
     Route: 058
     Dates: start: 20160608

REACTIONS (27)
  - Body temperature abnormal [Unknown]
  - Ear pain [Unknown]
  - Pharyngeal erythema [Unknown]
  - Intercepted drug administration error [Unknown]
  - Lethargy [Unknown]
  - Diarrhoea [Unknown]
  - Vomiting [Unknown]
  - Oral pain [Unknown]
  - Alopecia [Unknown]
  - Fatigue [Unknown]
  - Hypophagia [Unknown]
  - Malaise [Unknown]
  - Glossodynia [Unknown]
  - Headache [Unknown]
  - Feeling abnormal [Unknown]
  - Fatigue [Unknown]
  - Condition aggravated [Unknown]
  - Oropharyngeal pain [Unknown]
  - Eating disorder [Unknown]
  - Nausea [Unknown]
  - Dyspnoea [Unknown]
  - Cough [Unknown]
  - Productive cough [Unknown]
  - Odynophagia [Unknown]
  - Lower respiratory tract infection [Unknown]
  - Sputum discoloured [Unknown]
  - Headache [Unknown]

NARRATIVE: CASE EVENT DATE: 201606
